FAERS Safety Report 6403279-X (Version None)
Quarter: 2009Q4

REPORT INFORMATION
  Report Type: 
  Country: None (occurrence: None)
  Receive Date: 20091016
  Receipt Date: 20091008
  Transmission Date: 20100525
  Serious: Yes (Hospitalization, Other)
  Sender: FDA-Public Use
  Company Number: NO-JNJFOC-20090903174

PATIENT
  Sex: Male

DRUGS (2)
  1. CONCERTA [Suspect]
     Indication: ATTENTION DEFICIT/HYPERACTIVITY DISORDER
     Dosage: FOR 2 WEEKS IN MAY/JUN
     Route: 048
     Dates: start: 20090501, end: 20090601
  2. RITALIN [Suspect]
     Indication: ATTENTION DEFICIT/HYPERACTIVITY DISORDER
     Route: 065

REACTIONS (3)
  - DUODENAL ULCER HAEMORRHAGE [None]
  - GASTRIC DISORDER [None]
  - HAEMOGLOBIN DECREASED [None]
